APPROVED DRUG PRODUCT: CEFIZOX IN PLASTIC CONTAINER
Active Ingredient: CEFTIZOXIME SODIUM
Strength: EQ 20MG BASE/ML
Dosage Form/Route: INJECTABLE;INJECTION
Application: N050589 | Product #003
Applicant: ASTELLAS PHARMA US INC
Approved: Apr 13, 1995 | RLD: No | RS: No | Type: DISCN